FAERS Safety Report 10881380 (Version 1)
Quarter: 2015Q1

REPORT INFORMATION
  Report Type: Spontaneous
  Country: SE (occurrence: SE)
  Receive Date: 20150303
  Receipt Date: 20150303
  Transmission Date: 20150721
  Serious: Yes (Other)
  Sender: FDA-Public Use
  Company Number: PHHY2015SE022693

PATIENT
  Age: 32 Year
  Sex: Female

DRUGS (1)
  1. RITALIN [Suspect]
     Active Substance: METHYLPHENIDATE HYDROCHLORIDE
     Indication: PRODUCT USED FOR UNKNOWN INDICATION
     Route: 065
     Dates: start: 2014

REACTIONS (8)
  - Endocarditis [Unknown]
  - Thrombosis [Unknown]
  - Off label use [Unknown]
  - Brain abscess [Unknown]
  - Deafness [Unknown]
  - Incorrect route of drug administration [Unknown]
  - Cardiac disorder [Unknown]
  - Cerebral artery embolism [Unknown]

NARRATIVE: CASE EVENT DATE: 2014
